FAERS Safety Report 19888536 (Version 1)
Quarter: 2021Q3

REPORT INFORMATION
  Report Type: Spontaneous
  Country: US (occurrence: US)
  Receive Date: 20210927
  Receipt Date: 20210927
  Transmission Date: 20211014
  Serious: No
  Sender: FDA-Public Use
  Company Number: US-KVK-TECH, INC-20210400054

PATIENT
  Age: 65 Year
  Sex: Female
  Weight: 45 kg

DRUGS (9)
  1. OXYCODONE HYDROCHLORIDE TABLETS, USP [Suspect]
     Active Substance: OXYCODONE HYDROCHLORIDE
     Indication: PAIN
     Dosage: 10 MILLIGRAM (1 TABLET EVERY 4 HOURS)
     Dates: start: 2021
  2. PROMETHAZINE [Concomitant]
     Active Substance: PROMETHAZINE HYDROCHLORIDE
     Indication: NAUSEA
  3. DHEA [Concomitant]
     Active Substance: PRASTERONE
  4. ATORVASTATIN [Concomitant]
     Active Substance: ATORVASTATIN
     Indication: BLOOD CHOLESTEROL INCREASED
  5. TRAZODONE [Concomitant]
     Active Substance: TRAZODONE HYDROCHLORIDE
     Indication: SLEEP DISORDER
     Dosage: UNK, QD
  6. ONDANSETRON [Concomitant]
     Active Substance: ONDANSETRON
     Indication: NAUSEA
  7. EXCEDRIN MIGRAINE [Concomitant]
     Active Substance: ACETAMINOPHEN\ASPIRIN\CAFFEINE
     Indication: MIGRAINE
  8. MULTIVITAMIN (16) [Concomitant]
     Active Substance: VITAMINS
     Dosage: EVERY DAY
  9. BIOTIN [Concomitant]
     Active Substance: BIOTIN

REACTIONS (3)
  - Night sweats [Not Recovered/Not Resolved]
  - Sleep disorder [Not Recovered/Not Resolved]
  - Drug ineffective [Not Recovered/Not Resolved]

NARRATIVE: CASE EVENT DATE: 2021
